FAERS Safety Report 25357205 (Version 1)
Quarter: 2025Q2

REPORT INFORMATION
  Report Type: Spontaneous
  Country: FR (occurrence: FR)
  Receive Date: 20250526
  Receipt Date: 20250526
  Transmission Date: 20250717
  Serious: Yes (Hospitalization)
  Sender: ACCORD
  Company Number: None

PATIENT
  Age: 76 Year
  Sex: Female
  Weight: 54 kg

DRUGS (35)
  1. AMLODIPINE [Suspect]
     Active Substance: AMLODIPINE BESYLATE
     Indication: Hypertension
     Dates: start: 20250214, end: 20250310
  2. METHOTREXATE [Suspect]
     Active Substance: METHOTREXATE
     Indication: Diffuse large B-cell lymphoma
     Dates: start: 20241202, end: 20241202
  3. VINCRISTINE SULFATE [Suspect]
     Active Substance: VINCRISTINE SULFATE
     Indication: Diffuse large B-cell lymphoma
     Dates: start: 20241216, end: 20241216
  4. RITUXIMAB [Suspect]
     Active Substance: RITUXIMAB
     Indication: Diffuse large B-cell lymphoma
     Dates: start: 20241216, end: 20241216
  5. PROCARBAZINE [Suspect]
     Active Substance: PROCARBAZINE
     Indication: Diffuse large B-cell lymphoma
     Dates: start: 20241216, end: 20241216
  6. NICARDIPINE HYDROCHLORIDE [Concomitant]
     Active Substance: NICARDIPINE HYDROCHLORIDE
  7. ENOXAPARIN SODIUM [Concomitant]
     Active Substance: ENOXAPARIN SODIUM
  8. KARDEGIC [Concomitant]
     Active Substance: ASPIRIN DL-LYSINE
  9. RAMIPRIL [Concomitant]
     Active Substance: RAMIPRIL
  10. PREGABALIN [Concomitant]
     Active Substance: PREGABALIN
  11. PANTOPRAZOLE [Concomitant]
     Active Substance: PANTOPRAZOLE
  12. LEVETIRACETAM [Concomitant]
     Active Substance: LEVETIRACETAM
  13. HALDOL [Concomitant]
     Active Substance: HALOPERIDOL
  14. ESCITALOPRAM [Concomitant]
     Active Substance: ESCITALOPRAM OXALATE
  15. PREDNISOLONE [Concomitant]
     Active Substance: PREDNISOLONE
  16. VALACYCLOVIR HYDROCHLORIDE [Concomitant]
     Active Substance: VALACYCLOVIR HYDROCHLORIDE
  17. OXYCODONE HYDROCHLORIDE [Concomitant]
     Active Substance: OXYCODONE HYDROCHLORIDE
  18. CETIRIZINE HYDROCHLORIDE [Concomitant]
     Active Substance: CETIRIZINE HYDROCHLORIDE
  19. PROCARBAZINE [Suspect]
     Active Substance: PROCARBAZINE
     Indication: Diffuse large B-cell lymphoma
     Dates: start: 20250114, end: 20250114
  20. PROCARBAZINE [Suspect]
     Active Substance: PROCARBAZINE
     Indication: Diffuse large B-cell lymphoma
     Dates: start: 20250211, end: 20250211
  21. PROCARBAZINE [Suspect]
     Active Substance: PROCARBAZINE
     Indication: Diffuse large B-cell lymphoma
     Dates: start: 20250312, end: 20250312
  22. RITUXIMAB [Suspect]
     Active Substance: RITUXIMAB
     Indication: Diffuse large B-cell lymphoma
     Dates: start: 20241230, end: 20241230
  23. RITUXIMAB [Suspect]
     Active Substance: RITUXIMAB
     Indication: Diffuse large B-cell lymphoma
     Dates: start: 20250114, end: 20250114
  24. RITUXIMAB [Suspect]
     Active Substance: RITUXIMAB
     Indication: Diffuse large B-cell lymphoma
     Dates: start: 20250211, end: 20250211
  25. RITUXIMAB [Suspect]
     Active Substance: RITUXIMAB
     Indication: Diffuse large B-cell lymphoma
     Dates: start: 20250312, end: 20250312
  26. VINCRISTINE SULFATE [Suspect]
     Active Substance: VINCRISTINE SULFATE
     Indication: Diffuse large B-cell lymphoma
     Dates: start: 20241230, end: 20241230
  27. VINCRISTINE SULFATE [Suspect]
     Active Substance: VINCRISTINE SULFATE
     Indication: Diffuse large B-cell lymphoma
     Dates: start: 20250114, end: 20250114
  28. VINCRISTINE SULFATE [Suspect]
     Active Substance: VINCRISTINE SULFATE
     Indication: Diffuse large B-cell lymphoma
     Dates: start: 20250211, end: 20250211
  29. VINCRISTINE SULFATE [Suspect]
     Active Substance: VINCRISTINE SULFATE
     Indication: Diffuse large B-cell lymphoma
     Dates: start: 20250312, end: 20250312
  30. METHOTREXATE [Suspect]
     Active Substance: METHOTREXATE
     Indication: Diffuse large B-cell lymphoma
     Dates: start: 20241216, end: 20241216
  31. METHOTREXATE [Suspect]
     Active Substance: METHOTREXATE
     Indication: Diffuse large B-cell lymphoma
     Dates: start: 20241230, end: 20241230
  32. METHOTREXATE [Suspect]
     Active Substance: METHOTREXATE
     Indication: Diffuse large B-cell lymphoma
     Dates: start: 20250115, end: 20250115
  33. METHOTREXATE [Suspect]
     Active Substance: METHOTREXATE
     Indication: Diffuse large B-cell lymphoma
     Dates: start: 20250211, end: 20250211
  34. METHOTREXATE [Suspect]
     Active Substance: METHOTREXATE
     Indication: Diffuse large B-cell lymphoma
     Dates: start: 20250312, end: 20250312
  35. PROCARBAZINE [Suspect]
     Active Substance: PROCARBAZINE
     Indication: Diffuse large B-cell lymphoma
     Dates: start: 20241230, end: 20241230

REACTIONS (1)
  - Toxic epidermal necrolysis [Recovering/Resolving]

NARRATIVE: CASE EVENT DATE: 20250307
